FAERS Safety Report 4602517-3 (Version None)
Quarter: 2005Q1

REPORT INFORMATION
  Report Type: 
  Country: None (occurrence: None)
  Receive Date: 20050307
  Receipt Date: 20041229
  Transmission Date: 20050727
  Serious: Yes (Hospitalization, Other)
  Sender: FDA-Public Use
  Company Number: 2004237775US

PATIENT
  Age: 74 Year
  Sex: Female
  Weight: 77.1115 kg

DRUGS (5)
  1. BEXTRA [Suspect]
     Indication: BACK PAIN
     Dosage: 20 MG (1 IN 1 D)
     Dates: start: 20040601, end: 20040901
  2. BEXTRA [Suspect]
     Indication: PAIN IN EXTREMITY
     Dosage: 20 MG (1 IN 1 D)
     Dates: start: 20040601, end: 20040901
  3. AMLODIPINE BESYLATE [Concomitant]
  4. LOSARTAN POTASSIUM [Concomitant]
  5. METOPROLOL TARTRATE [Concomitant]

REACTIONS (3)
  - EXTRASYSTOLES [None]
  - PAIN [None]
  - SICK SINUS SYNDROME [None]
